FAERS Safety Report 17087041 (Version 4)
Quarter: 2020Q2

REPORT INFORMATION
  Report Type: Report from Study
  Country: None (occurrence: US)
  Receive Date: 20191128
  Receipt Date: 20200612
  Transmission Date: 20200713
  Serious: Yes (Hospitalization, Other)
  Sender: FDA-Public Use
  Company Number: US-ABBVIE-19P-163-3172085-00

PATIENT
  Sex: Female

DRUGS (3)
  1. IMBRUVICA [Suspect]
     Active Substance: IBRUTINIB
     Indication: CHRONIC LYMPHOCYTIC LEUKAEMIA
     Route: 048
     Dates: start: 20180608
  2. IMBRUVICA [Suspect]
     Active Substance: IBRUTINIB
     Route: 048
     Dates: start: 201806
  3. IMBRUVICA [Suspect]
     Active Substance: IBRUTINIB
     Route: 048
     Dates: start: 20180607

REACTIONS (18)
  - Chills [Unknown]
  - Abdominal discomfort [Unknown]
  - Myalgia [Unknown]
  - Incision site pain [Unknown]
  - Cough [Unknown]
  - Skin haemorrhage [Unknown]
  - Dizziness [Unknown]
  - Hip fracture [Unknown]
  - Heart rate abnormal [Unknown]
  - Feeling of body temperature change [Unknown]
  - Procedural haemorrhage [Unknown]
  - Bone pain [Unknown]
  - Red blood cell count decreased [Unknown]
  - Sinusitis [Unknown]
  - White blood cell count decreased [Unknown]
  - Diarrhoea [Unknown]
  - Arthralgia [Unknown]
  - Skin fissures [Unknown]
